FAERS Safety Report 25915723 (Version 1)
Quarter: 2025Q4

REPORT INFORMATION
  Report Type: Spontaneous
  Country: US (occurrence: US)
  Receive Date: 20251013
  Receipt Date: 20251013
  Transmission Date: 20260118
  Serious: No
  Sender: MERCK SHARP & DOHME LLC
  Company Number: US-009507513-2337743

PATIENT
  Sex: Female

DRUGS (14)
  1. WINREVAIR [Suspect]
     Active Substance: SOTATERCEPT-CSRK
     Indication: Pulmonary hypertension
     Route: 058
     Dates: start: 20250717
  2. WINREVAIR [Suspect]
     Active Substance: SOTATERCEPT-CSRK
  3. WINREVAIR [Suspect]
     Active Substance: SOTATERCEPT-CSRK
  4. WINREVAIR [Suspect]
     Active Substance: SOTATERCEPT-CSRK
  5. GABAPENTIN [Concomitant]
     Active Substance: GABAPENTIN
  6. TADALAFIL [Concomitant]
     Active Substance: TADALAFIL
  7. TREPROSTINIL [Concomitant]
     Active Substance: TREPROSTINIL
  8. MACITENTAN [Concomitant]
     Active Substance: MACITENTAN
  9. ASPIRIN [Concomitant]
     Active Substance: ASPIRIN
  10. LASIX [Concomitant]
     Active Substance: FUROSEMIDE
  11. POTASSIUM [Concomitant]
     Active Substance: POTASSIUM
  12. ZOLOFT [Concomitant]
     Active Substance: SERTRALINE HYDROCHLORIDE
  13. PRILOSEC [Concomitant]
     Active Substance: OMEPRAZOLE MAGNESIUM
  14. SYNTHROID [Concomitant]
     Active Substance: LEVOTHYROXINE SODIUM

REACTIONS (1)
  - Diarrhoea [Not Recovered/Not Resolved]

NARRATIVE: CASE EVENT DATE: 20250101
